FAERS Safety Report 17761651 (Version 1)
Quarter: 2020Q2

REPORT INFORMATION
  Report Type: Spontaneous
  Country: ES (occurrence: ES)
  Receive Date: 20200508
  Receipt Date: 20200508
  Transmission Date: 20200714
  Serious: Yes (Hospitalization)
  Sender: FDA-Public Use
  Company Number: ES-CADILA HEALTHCARE LIMITED-ES-ZYDUS-027601

PATIENT

DRUGS (6)
  1. FLUOROURACILO [Suspect]
     Active Substance: FLUOROURACIL
     Indication: PRODUCT USED FOR UNKNOWN INDICATION
     Route: 042
     Dates: start: 20170504, end: 20170504
  2. IRINOTECAN [Suspect]
     Active Substance: IRINOTECAN
     Indication: PRODUCT USED FOR UNKNOWN INDICATION
     Dosage: 318 MG (CICLO 8)
     Dates: start: 20170504, end: 20170504
  3. LEUCOVORIN. [Concomitant]
     Active Substance: LEUCOVORIN
     Dosage: 700 MG
     Route: 042
     Dates: start: 20170504, end: 20170504
  4. OMEPRAZOLE. [Suspect]
     Active Substance: OMEPRAZOLE
     Indication: PRODUCT USED FOR UNKNOWN INDICATION
     Dosage: 1 CP DIA
     Route: 048
     Dates: start: 20170504, end: 20170518
  5. KYTRIL [Concomitant]
     Active Substance: GRANISETRON HYDROCHLORIDE
     Dosage: 1 AMP
     Route: 042
     Dates: start: 20170504, end: 20170504
  6. DEXAMETASONA [Concomitant]
     Active Substance: DEXAMETHASONE
     Dosage: 12 MG
     Route: 042
     Dates: start: 20170504, end: 20170504

REACTIONS (1)
  - Hypokalaemia [Recovered/Resolved]

NARRATIVE: CASE EVENT DATE: 20170518
